FAERS Safety Report 4526972-2 (Version None)
Quarter: 2004Q4

REPORT INFORMATION
  Report Type: 
  Country: None (occurrence: None)
  Receive Date: 20041208
  Receipt Date: 20041201
  Transmission Date: 20050328
  Serious: Yes (Other)
  Sender: FDA-Public Use
  Company Number: HQWYE531120APR04

PATIENT
  Age: 7 Year
  Sex: Male
  Weight: 24 kg

DRUGS (5)
  1. REFACTO [Suspect]
     Indication: FACTOR VIII DEFICIENCY
     Dosage: 30 U/KG (MINOR BLEEDS) TO 50 U/KG (MAJOR BLEEDS); ON DEMAND THERAPY, INTRAVENOUS
     Route: 042
     Dates: start: 20010101, end: 20040101
  2. REFACTO [Suspect]
  3. REFACTO [Suspect]
  4. REFACTO [Suspect]
  5. REFACTO [Suspect]

REACTIONS (3)
  - DRUG INEFFECTIVE [None]
  - HAEMARTHROSIS [None]
  - MUSCULOSKELETAL DISCOMFORT [None]
